FAERS Safety Report 9976003 (Version 1)
Quarter: 2014Q1

REPORT INFORMATION
  Report Type: Spontaneous
  Country: US (occurrence: US)
  Receive Date: 20140306
  Receipt Date: 20140306
  Transmission Date: 20141002
  Serious: No
  Sender: FDA-Public Use
  Company Number: US-PFIZER INC-2014062952

PATIENT
  Age: 65 Year
  Sex: Female
  Weight: 93.42 kg

DRUGS (3)
  1. CHANTIX [Suspect]
     Indication: SMOKING CESSATION THERAPY
     Dosage: UNK
     Dates: start: 2008, end: 2008
  2. CHANTIX [Suspect]
     Dosage: UNK
     Dates: start: 20131231, end: 2014
  3. METOPROLOL [Concomitant]
     Indication: HEART RATE ABNORMAL
     Dosage: 100 MG, DAILY

REACTIONS (3)
  - Restlessness [Unknown]
  - Pain [Unknown]
  - Abnormal dreams [Unknown]
